FAERS Safety Report 4446708-3 (Version None)
Quarter: 2004Q3

REPORT INFORMATION
  Report Type: 
  Country: None (occurrence: None)
  Receive Date: 20040908
  Receipt Date: 20040818
  Transmission Date: 20050211
  Serious: Yes (Life-Threatening)
  Sender: FDA-Public Use
  Company Number: 2004080008

PATIENT
  Age: 73 Year
  Sex: Male

DRUGS (1)
  1. DORAL [Suspect]
     Indication: INSOMNIA
     Dosage: 15 MG/D, PO
     Route: 048
     Dates: start: 20040205, end: 20040206

REACTIONS (1)
  - RESPIRATORY DEPRESSION [None]
